FAERS Safety Report 8406290-2 (Version None)
Quarter: 2012Q2

REPORT INFORMATION
  Report Type: 
  Country: None (occurrence: None)
  Receive Date: 20120529
  Receipt Date: 20060419
  Transmission Date: 20120825
  Serious: Yes (Hospitalization)
  Sender: FDA-Public Use
  Company Number: 15691-USA-06-1172

PATIENT
  Age: 68 Year
  Sex: Male

DRUGS (5)
  1. SPIRONOLACTONE [Concomitant]
  2. TOLVAPTAN (TOLVAPTAN(4.1)) 30MG [Suspect]
     Indication: CARDIAC FAILURE CONGESTIVE
     Dosage: 30 MG, QD, ORAL
     Route: 048
     Dates: start: 20040603
  3. ENALAPRIL MALEATE [Concomitant]
  4. CARVEDILOL [Concomitant]
  5. FUROSEMIDE [Concomitant]

REACTIONS (7)
  - HAEMOGLOBIN DECREASED [None]
  - AKINESIA [None]
  - CONGESTIVE CARDIOMYOPATHY [None]
  - HAEMATOCRIT DECREASED [None]
  - NECROSIS [None]
  - SYNCOPE [None]
  - TACHYCARDIA [None]
